FAERS Safety Report 22364385 (Version 1)
Quarter: 2023Q2

REPORT INFORMATION
  Report Type: Spontaneous
  Country: US (occurrence: US)
  Receive Date: 20230525
  Receipt Date: 20230525
  Transmission Date: 20230721
  Serious: No
  Sender: FDA-Public Use
  Company Number: US-UCBSA-2023001068

PATIENT
  Age: 63 Year
  Sex: Female

DRUGS (2)
  1. CIMZIA [Suspect]
     Active Substance: CERTOLIZUMAB PEGOL
     Indication: Product used for unknown indication
     Dosage: 200 MILLIGRAM, UNK
     Route: 058
     Dates: start: 20210824
  2. NITROFURANTOIN [Concomitant]
     Active Substance: NITROFURANTOIN
     Indication: Urinary tract infection

REACTIONS (4)
  - Urinary tract infection [Recovered/Resolved]
  - Chromaturia [Unknown]
  - Urine odour abnormal [Unknown]
  - Bilirubin urine [Unknown]

NARRATIVE: CASE EVENT DATE: 20221205
